FAERS Safety Report 6659677-2 (Version None)
Quarter: 2010Q1

REPORT INFORMATION
  Report Type: 
  Country: None (occurrence: None)
  Receive Date: 20100330
  Receipt Date: 20100322
  Transmission Date: 20100710
  Serious: Yes (Other)
  Sender: FDA-Public Use
  Company Number: US-AMGEN-QUU400990

PATIENT
  Sex: Female

DRUGS (3)
  1. NPLATE [Suspect]
     Indication: DRUG USE FOR UNKNOWN INDICATION
     Dates: start: 20100301
  2. METOPROLOL TARTRATE [Concomitant]
  3. UNSPECIFIED ANTINEOPLASTIC AGENT [Concomitant]
     Dates: start: 20100301

REACTIONS (1)
  - HAEMOPTYSIS [None]
